FAERS Safety Report 10378404 (Version 1)
Quarter: 2014Q1

REPORT INFORMATION
  Report Type: Spontaneous
  Country: US (occurrence: None)
  Receive Date: 20140306
  Receipt Date: 20140306
  Transmission Date: 20141002
  Serious: Yes (Hospitalization, Other)
  Sender: FDA-Public Use
  Company Number: 163-21880-13014434

PATIENT
  Age: 60 Year
  Sex: Male

DRUGS (4)
  1. REVLIMID [Suspect]
     Indication: PLASMA CELL MYELOMA
     Dosage: 10 MG, 28 IN 28 D, PO
     Route: 048
     Dates: start: 20120523
  2. AMIODARONE [Concomitant]
  3. ECOTRIN (ACETYLSALICYLIC ACID) [Concomitant]
  4. KYPOLIS [Concomitant]

REACTIONS (7)
  - Atrial fibrillation [None]
  - Dyspnoea [None]
  - Muscle spasms [None]
  - Nasopharyngitis [None]
  - Pneumonia [None]
  - Haemoglobin decreased [None]
  - Chest discomfort [None]
